FAERS Safety Report 4623150-3 (Version None)
Quarter: 2005Q1

REPORT INFORMATION
  Report Type: 
  Country: None (occurrence: None)
  Receive Date: 20050330
  Receipt Date: 20050323
  Transmission Date: 20050727
  Serious: Yes (Hospitalization)
  Sender: FDA-Public Use
  Company Number: JP-ABBOTT-05P-087-0295122-00

PATIENT
  Age: 56 Year
  Sex: Male

DRUGS (11)
  1. KALETRA [Suspect]
     Indication: HIV INFECTION
     Route: 048
     Dates: start: 20020513, end: 20020715
  2. KALETRA [Suspect]
     Route: 048
     Dates: start: 20030409, end: 20030409
  3. NELFINAVIR MESILATE [Suspect]
     Indication: HIV INFECTION
     Route: 048
     Dates: start: 20030425
  4. VIREAD [Suspect]
     Indication: HIV INFECTION
     Route: 048
     Dates: start: 20030409, end: 20030409
  5. VIREAD [Suspect]
     Route: 048
     Dates: start: 20030425
  6. EFAVIRENZ [Concomitant]
     Indication: HIV INFECTION
     Dates: start: 20030409, end: 20030409
  7. EFAVIRENZ [Concomitant]
     Dates: start: 20030425
  8. BERIZYM [Concomitant]
     Indication: DRUG USE FOR UNKNOWN INDICATION
  9. ABACAVIR SULFATE [Concomitant]
     Indication: HIV INFECTION
     Dates: end: 20030409
  10. LAMIVUDINE [Concomitant]
     Indication: HIV INFECTION
     Dates: end: 20030409
  11. DIDANOSINE [Concomitant]
     Indication: HIV INFECTION
     Dates: end: 20030409

REACTIONS (5)
  - ARRHYTHMIA [None]
  - BRADYCARDIA [None]
  - DIARRHOEA [None]
  - EXTRASYSTOLES [None]
  - VENTRICULAR EXTRASYSTOLES [None]
